FAERS Safety Report 6986292-3 (Version None)
Quarter: 2010Q3

REPORT INFORMATION
  Report Type: 
  Country: None (occurrence: None)
  Receive Date: 20100915
  Receipt Date: 20090727
  Transmission Date: 20110219
  Serious: No
  Sender: FDA-Public Use
  Company Number: US-WYE-H09876609

PATIENT
  Sex: Female
  Weight: 76.73 kg

DRUGS (2)
  1. PRISTIQ [Suspect]
     Indication: DEPRESSION
     Route: 048
     Dates: start: 20080601
  2. ADVIL LIQUI-GELS [Suspect]
     Indication: PAIN
     Dosage: ^500 MG A DAY SOME OF THAT TIME^
     Dates: start: 19890101

REACTIONS (3)
  - ABNORMAL SENSATION IN EYE [None]
  - CONTUSION [None]
  - EYE DISCHARGE [None]
